FAERS Safety Report 8233145-9 (Version None)
Quarter: 2012Q1

REPORT INFORMATION
  Report Type: 
  Country: None (occurrence: None)
  Receive Date: 20120326
  Receipt Date: 20120321
  Transmission Date: 20120608
  Serious: Yes (Other)
  Sender: FDA-Public Use
  Company Number: US-PFIZER INC-2012021483

PATIENT
  Sex: Male

DRUGS (5)
  1. LORTAB [Concomitant]
     Indication: PAIN
     Dosage: 10/500MG, EVERY 6 HOURS AS NEEDED
  2. ALPRAZOLAM [Suspect]
     Indication: ANXIETY
     Dosage: 2 MG, 3X/DAY AS NEEDED
     Route: 048
     Dates: start: 20100101
  3. ALPRAZOLAM [Suspect]
     Dosage: 2 MG, 1X/DAY (NIGHT)
     Route: 048
  4. ALPRAZOLAM [Suspect]
     Dosage: 2 MG, SOMETIMES AS NEEDED
     Route: 048
  5. ALPRAZOLAM [Suspect]
     Dosage: 2 MG, UNK
     Route: 048

REACTIONS (1)
  - CONVULSION [None]
